FAERS Safety Report 8924086 (Version 1)
Quarter: 2012Q4

REPORT INFORMATION
  Report Type: 
  Country: US (occurrence: US)
  Receive Date: 20121126
  Receipt Date: 20121126
  Transmission Date: 20130627
  Serious: No
  Sender: FDA-Public Use
  Company Number: US-MYLANLABS-2012S1022166

PATIENT

DRUGS (1)
  1. NICARDIPINE HYDROCHLORIDE [Suspect]
     Route: 042
     Dates: start: 201210

REACTIONS (1)
  - Extravasation [Not Recovered/Not Resolved]
